FAERS Safety Report 21335308 (Version 1)
Quarter: 2022Q3

REPORT INFORMATION
  Report Type: Spontaneous
  Country: DK (occurrence: DK)
  Receive Date: 20220915
  Receipt Date: 20220915
  Transmission Date: 20221027
  Serious: Yes (Other)
  Sender: FDA-Public Use
  Company Number: None

PATIENT
  Age: 19 Year
  Sex: Female

DRUGS (1)
  1. BRIVIACT [Suspect]
     Active Substance: BRIVARACETAM
     Indication: Epilepsy
     Dosage: DOSAGE: 200 MG DAILY.STRENGTH: UNKNOWN.
     Dates: start: 20160915, end: 201807

REACTIONS (13)
  - Fatigue [Unknown]
  - Hallucination [Recovered/Resolved]
  - Suicidal ideation [Unknown]
  - Hallucinations, mixed [Recovered/Resolved]
  - Disturbance in attention [Unknown]
  - Depression [Recovered/Resolved]
  - Anxiety [Not Recovered/Not Resolved]
  - Psychotic symptom [Recovered/Resolved]
  - Self-destructive behaviour [Unknown]
  - Depressive symptom [Recovered/Resolved]
  - Depressed mood [Recovered/Resolved]
  - Insomnia [Unknown]
  - Self esteem decreased [Unknown]

NARRATIVE: CASE EVENT DATE: 20160901
